FAERS Safety Report 20628597 (Version 1)
Quarter: 2022Q1

REPORT INFORMATION
  Report Type: Spontaneous
  Country: US (occurrence: US)
  Receive Date: 20220323
  Receipt Date: 20220323
  Transmission Date: 20220423
  Serious: Yes (Other)
  Sender: FDA-Public Use
  Company Number: US-AMERICAN REGENT INC-2022000759

PATIENT
  Age: 52 Year
  Sex: Male
  Weight: 71.1 kg

DRUGS (9)
  1. VENOFER [Suspect]
     Active Substance: IRON SUCROSE
     Indication: Product used for unknown indication
     Dosage: UNK
     Route: 042
  2. VENOFER [Suspect]
     Active Substance: IRON SUCROSE
     Dosage: UNK
     Route: 042
     Dates: start: 20220117, end: 20220117
  3. MIRCERA [Suspect]
     Active Substance: METHOXY POLYETHYLENE GLYCOL-EPOETIN BETA
     Indication: Nephrogenic anaemia
     Dosage: 75 MCG (3 SYRINGES) (225 MCG)
     Dates: start: 20211108, end: 20211108
  4. MIRCERA [Suspect]
     Active Substance: METHOXY POLYETHYLENE GLYCOL-EPOETIN BETA
     Dosage: 75 MCG (3 SYRINGES) (225 MCG, 1 IN 2 WK)
     Dates: start: 20211206, end: 20211206
  5. MIRCERA [Suspect]
     Active Substance: METHOXY POLYETHYLENE GLYCOL-EPOETIN BETA
     Dosage: 75 MCG (3 SYRINGES) (225 MCG, 1 IN 2 WK)
     Dates: start: 20211220, end: 20211220
  6. MIRCERA [Suspect]
     Active Substance: METHOXY POLYETHYLENE GLYCOL-EPOETIN BETA
     Dosage: 75 MCG (3 SYRINGES) (225 MCG, 1 IN 2 WK)
     Dates: start: 202201, end: 202201
  7. MIRCERA [Suspect]
     Active Substance: METHOXY POLYETHYLENE GLYCOL-EPOETIN BETA
     Dosage: 75 MCG (3 SYRINGES) (225 MCG, 1 IN 2 WK)
     Dates: start: 20220117, end: 20220117
  8. CALCITRIOL [Suspect]
     Active Substance: CALCITRIOL
     Indication: Product used for unknown indication
     Dosage: UNK
     Route: 065
  9. CALCITRIOL [Suspect]
     Active Substance: CALCITRIOL
     Dosage: UNK, SINGLE
     Route: 065
     Dates: start: 20220117, end: 20220117

REACTIONS (1)
  - Drug hypersensitivity [Recovered/Resolved]

NARRATIVE: CASE EVENT DATE: 20211108
